FAERS Safety Report 6223811-9 (Version None)
Quarter: 2009Q2

REPORT INFORMATION
  Report Type: 
  Country: None (occurrence: None)
  Receive Date: 20090611
  Receipt Date: 20090410
  Transmission Date: 20091009
  Serious: No
  Sender: FDA-Public Use
  Company Number: US-ABBOTT-09P-163-0559325-00

PATIENT
  Sex: Female
  Weight: 78.088 kg

DRUGS (4)
  1. HUMIRA [Suspect]
     Indication: RHEUMATOID ARTHRITIS
     Route: 058
     Dates: start: 20081215, end: 20090131
  2. ASCORBIC ACID [Concomitant]
     Indication: ROUTINE HEALTH MAINTENANCE
  3. VITAMIN D [Concomitant]
     Indication: ROUTINE HEALTH MAINTENANCE
  4. FISH OIL [Concomitant]
     Indication: ROUTINE HEALTH MAINTENANCE

REACTIONS (9)
  - ERYTHEMA [None]
  - LYMPHADENOPATHY [None]
  - PAIN OF SKIN [None]
  - PRURITUS GENERALISED [None]
  - RASH [None]
  - RASH GENERALISED [None]
  - SKIN BURNING SENSATION [None]
  - SKIN IRRITATION [None]
  - SKIN SWELLING [None]
